FAERS Safety Report 9013895 (Version 5)
Quarter: 2014Q1

REPORT INFORMATION
  Report Type: Spontaneous
  Country: US (occurrence: US)
  Receive Date: 20130115
  Receipt Date: 20140219
  Transmission Date: 20141002
  Serious: Yes (Hospitalization, Other)
  Sender: FDA-Public Use
  Company Number: US-009507513-1301USA005924

PATIENT
  Sex: Male
  Weight: 83.9 kg

DRUGS (7)
  1. FOSAMAX [Suspect]
     Indication: OSTEOPOROSIS
     Dosage: 70 MG, UNK
     Route: 048
     Dates: start: 20060312, end: 200804
  2. FOSAMAX [Suspect]
     Indication: OSTEOPENIA
  3. ALENDRONATE SODIUM [Suspect]
     Indication: OSTEOPOROSIS
     Dosage: UNK
     Route: 048
     Dates: start: 200804, end: 201106
  4. ALENDRONATE SODIUM [Suspect]
     Indication: OSTEOPENIA
  5. ACTONEL [Suspect]
     Indication: OSTEOPOROSIS
     Dosage: UNK
     Dates: start: 200502, end: 200601
  6. ACTONEL [Suspect]
     Indication: OSTEOPENIA
  7. FLONASE [Concomitant]
     Indication: HYPERSENSITIVITY

REACTIONS (24)
  - Femur fracture [Recovered/Resolved]
  - Intramedullary rod insertion [Unknown]
  - Fall [Recovered/Resolved]
  - Femur fracture [Recovered/Resolved]
  - Fall [Unknown]
  - Intramedullary rod insertion [Unknown]
  - Atrioventricular block first degree [Unknown]
  - Fracture nonunion [Unknown]
  - Low turnover osteopathy [Unknown]
  - Blood cholesterol increased [Unknown]
  - Muscle strain [Unknown]
  - Chondrocalcinosis pyrophosphate [Unknown]
  - Fall [Unknown]
  - Muscle strain [Unknown]
  - Hypertension [Unknown]
  - Hyperlipidaemia [Unknown]
  - Thoracic vertebral fracture [Unknown]
  - Vertebroplasty [Unknown]
  - Osteoarthritis [Unknown]
  - Osteoarthritis [Unknown]
  - Seasonal allergy [Unknown]
  - Rhinitis allergic [Unknown]
  - Drug hypersensitivity [Unknown]
  - Gastrooesophageal reflux disease [Unknown]
